FAERS Safety Report 20780424 (Version 1)
Quarter: 2022Q2

REPORT INFORMATION
  Report Type: Spontaneous
  Country: US (occurrence: US)
  Receive Date: 20220504
  Receipt Date: 20220504
  Transmission Date: 20220721
  Serious: No
  Sender: FDA-Public Use
  Company Number: US-AMGEN-USASP2022068486

PATIENT
  Age: 59 Year
  Sex: Female

DRUGS (2)
  1. ARANESP [Suspect]
     Active Substance: DARBEPOETIN ALFA
     Indication: Anaemia
     Dosage: 500 MICROGRAM/MILLITRE, Q3WK
     Route: 065
     Dates: start: 20220223
  2. ARANESP [Suspect]
     Active Substance: DARBEPOETIN ALFA
     Dosage: 500 MICROGRAM/MILLITRE, Q3WK
     Route: 065
     Dates: start: 2022

REACTIONS (1)
  - Therapy non-responder [Unknown]
